FAERS Safety Report 10678666 (Version 2)
Quarter: 2020Q4

REPORT INFORMATION
  Report Type: Report from Study
  Country: CA (occurrence: CA)
  Receive Date: 20141229
  Receipt Date: 20201130
  Transmission Date: 20210113
  Serious: Yes (Other)
  Sender: FDA-Public Use
  Company Number: CA-JNJFOC-20141211142

PATIENT
  Age: 63 Year
  Sex: Female
  Weight: 55.39 kg

DRUGS (1)
  1. STELARA [Suspect]
     Active Substance: USTEKINUMAB
     Indication: PSORIASIS
     Dosage: 45MG PFS EVERY 12 WEEKS SUBCUTANEOUS
     Route: 058
     Dates: start: 201005

REACTIONS (2)
  - Amyotrophic lateral sclerosis [Unknown]
  - Wrist fracture [Unknown]

NARRATIVE: CASE EVENT DATE: 201411
